FAERS Safety Report 7487247-5 (Version None)
Quarter: 2011Q2

REPORT INFORMATION
  Report Type: 
  Country: None (occurrence: None)
  Receive Date: 20110518
  Receipt Date: 20110502
  Transmission Date: 20111010
  Serious: Yes (Other)
  Sender: FDA-Public Use
  Company Number: DE-JNJFOC-20110506305

PATIENT
  Age: 8 Decade
  Sex: Male
  Weight: 75 kg

DRUGS (5)
  1. ANALGESICS [Concomitant]
     Indication: BACK PAIN
     Route: 065
  2. TAPENTADOL [Suspect]
     Indication: BACK PAIN
     Route: 065
     Dates: start: 20101028, end: 20110302
  3. MUSCLE RELAXANTS [Concomitant]
     Indication: BACK PAIN
  4. LYRICA [Concomitant]
     Indication: BACK PAIN
     Route: 065
  5. NSAID'S [Concomitant]
     Indication: BACK PAIN
     Route: 065

REACTIONS (3)
  - ABDOMINAL PAIN UPPER [None]
  - ABDOMINAL PAIN [None]
  - CHEST PAIN [None]
